FAERS Safety Report 9074999 (Version 1)
Quarter: 2013Q1

REPORT INFORMATION
  Report Type: Report from Study
  Country: US (occurrence: US)
  Receive Date: 20130129
  Receipt Date: 20130129
  Transmission Date: 20140127
  Serious: No
  Sender: FDA-Public Use
  Company Number: US-ABBOTT-12P-163-0921678-00

PATIENT
  Age: 39 Year
  Sex: Female

DRUGS (4)
  1. HUMIRA 40 MG/0.8 ML PEN [Suspect]
     Indication: CROHN^S DISEASE
     Dosage: 160MG LOADING DOSE
     Dates: start: 20120301
  2. HUMIRA 40 MG/0.8 ML PEN [Suspect]
     Dates: start: 20120315
  3. HUMIRA 40 MG/0.8 ML PEN [Suspect]
     Dates: start: 20120329
  4. ASACOL [Concomitant]
     Indication: PRODUCT USED FOR UNKNOWN INDICATION
     Dosage: DAILY

REACTIONS (4)
  - Joint lock [Recovered/Resolved]
  - Arthropathy [Recovered/Resolved]
  - Crohn^s disease [Not Recovered/Not Resolved]
  - Muscle spasms [Recovered/Resolved]
